FAERS Safety Report 18201754 (Version 1)
Quarter: 2020Q3

REPORT INFORMATION
  Report Type: Other
  Country: GB (occurrence: GB)
  Receive Date: 20200827
  Receipt Date: 20200827
  Transmission Date: 20201103
  Serious: Yes (Other)
  Sender: FDA-Public Use
  Company Number: GB-EMCURE PHARMACEUTICALS LTD-2020-EPL-001181

PATIENT
  Age: 54 Year
  Sex: Male
  Weight: 104 kg

DRUGS (28)
  1. BISOPROLOL [Concomitant]
     Active Substance: BISOPROLOL
     Dosage: 1 DOSAGE FORM, DAILY
     Dates: start: 20191107
  2. RAMIPRIL. [Concomitant]
     Active Substance: RAMIPRIL
     Dosage: 1 DOSAGE FORM, DAILY
     Dates: start: 20191107
  3. APIXABAN [Concomitant]
     Active Substance: APIXABAN
     Dosage: 2 DOSAGE FORM, DAILY
     Dates: start: 20200206
  4. FEXOFENADINE [Concomitant]
     Active Substance: FEXOFENADINE HYDROCHLORIDE
     Dosage: 1 DOSAGE FORM, DAILY
     Dates: start: 20200206
  5. METFORMIN [Suspect]
     Active Substance: METFORMIN HYDROCHLORIDE
     Indication: PRODUCT USED FOR UNKNOWN INDICATION
     Dosage: 1000 MILLIGRAM, DAILY, WITH FOOD MORNING AND EVENING
     Dates: start: 20191014
  6. OMEPRAZOLE. [Concomitant]
     Active Substance: OMEPRAZOLE
     Dosage: 2 DOSAGE FORM, DAILY
     Dates: start: 20191107
  7. SUKKARTO [Concomitant]
     Active Substance: METFORMIN HYDROCHLORIDE
     Dosage: 2 DOSAGE FORM, DAILY, WITH FOOD MORNING AND EVENING
     Dates: start: 20200331, end: 20200427
  8. NICOTINE. [Concomitant]
     Active Substance: NICOTINE
     Dosage: APPLY DAILY
     Dates: start: 20200206, end: 20200305
  9. SERTRALINE [Concomitant]
     Active Substance: SERTRALINE HYDROCHLORIDE
     Dosage: 1 DOSAGE FORM, DAILY
     Dates: start: 20200103
  10. ACETYLSALICYLIC ACID [Concomitant]
     Active Substance: ASPIRIN
     Dosage: 1 DOSAGE FORM, DAILY
     Dates: start: 20191107
  11. TRIMOVATE [Concomitant]
     Active Substance: CLOBETASONE BUTYRATE\NYSTATIN\OXYTETRACYCLINE CALCIUM
     Dosage: 2 DOSAGE FORM, TO PENIS
     Dates: start: 20200207, end: 20200214
  12. HYDROXOCOBALAMIN [Concomitant]
     Active Substance: HYDROXOCOBALAMIN
     Dosage: USE AS DIRECTED
     Dates: start: 20190618
  13. DAKTACORT [Concomitant]
     Active Substance: HYDROCORTISONE\MICONAZOLE NITRATE
     Dosage: 2 DOSAGE FORM, APPLY THINLY, AS DIRECTED
     Dates: start: 20191108
  14. MOMETASONE [Concomitant]
     Active Substance: MOMETASONE
     Dosage: 1 DOSAGE FORM, DAILY, APPLY THINLY, AS DIRECTED
     Dates: start: 20200103
  15. ATORVASTATIN [Concomitant]
     Active Substance: ATORVASTATIN
     Dosage: 1 DOSAGE FORM, QD (AT NIGHT)
     Dates: start: 20190624
  16. EMULSIFYING WAX [Concomitant]
     Dosage: USE AS DIRECTED
     Dates: start: 20200131
  17. DOXAZOSIN [Concomitant]
     Active Substance: DOXAZOSIN MESYLATE
     Dosage: 1 DOSAGE FORM, DAILY
     Dates: start: 20190425
  18. GLYCERYL TRINITRATE [Concomitant]
     Active Substance: NITROGLYCERIN
     Dosage: 1?2 SPRAYS WHEN REQUIRED
     Dates: start: 20191220
  19. PARAFFIN WHITE SOFT [Concomitant]
     Dosage: 1 DOSAGE FORM, AS NECESSARY, APPLY
     Dates: start: 20200207, end: 20200212
  20. FLUCLOXACILLIN [Concomitant]
     Active Substance: FLUCLOXACILLIN
     Dosage: 4 DOSAGE FORM, DAILY
     Dates: start: 20200207, end: 20200214
  21. PARACETAMOL [Concomitant]
     Active Substance: ACETAMINOPHEN
     Dosage: TAKE 1 OR 2 4 TIMES/DAY
     Dates: start: 20200131, end: 20200228
  22. BEZAFIBRATE [Concomitant]
     Active Substance: BEZAFIBRATE
     Dosage: 3 DOSAGE FORM, DAILY
     Dates: start: 20191220
  23. EMPAGLIFLOZIN [Concomitant]
     Active Substance: EMPAGLIFLOZIN
     Dosage: 1 DOSAGE FORM, DAILY
     Dates: start: 20191107
  24. HYDROXYZINE [Concomitant]
     Active Substance: HYDROXYZINE HYDROCHLORIDE
     Indication: PRURITUS
     Dosage: 1 DOSAGE FORM, QD (AT NIGHT)
     Dates: start: 20200102
  25. MONOMIL XL [Concomitant]
     Active Substance: ISOSORBIDE MONONITRATE
     Dosage: 1 DOSAGE FORM, QD (IN MORNING)
     Dates: start: 20191030
  26. COCODAMOL [Concomitant]
     Active Substance: ACETAMINOPHEN\CODEINE PHOSPHATE
     Dosage: ONE OR TWO TO BE TAKEN FOUR TIMES A DAY WHEN RE...
     Dates: start: 20200103
  27. CODEINE PHOSPHATE [Concomitant]
     Active Substance: CODEINE PHOSPHATE
     Indication: PAIN
     Dosage: TAKE ONE OR TWO UP TO  4 TIMES/DAY FOR PAIN NOT CONTROLLED BY PARACETAMOL
     Dates: start: 20200311, end: 20200325
  28. EUMOVATE [Concomitant]
     Active Substance: CLOBETASONE BUTYRATE
     Dosage: APPLY 1?2 TIMES/DAY
     Dates: start: 20200131, end: 20200207

REACTIONS (2)
  - Endocrine disorder [Recovering/Resolving]
  - Blood lactic acid increased [Unknown]

NARRATIVE: CASE EVENT DATE: 20200427
